FAERS Safety Report 9039569 (Version 1)
Quarter: 2013Q1

REPORT INFORMATION
  Report Type: Spontaneous
  Country: US (occurrence: US)
  Receive Date: 20130129
  Receipt Date: 20130129
  Transmission Date: 20140127
  Serious: No
  Sender: FDA-Public Use
  Company Number: US-ABBOTT-12P-163-0943618-00

PATIENT
  Sex: Female
  Weight: 89.44 kg

DRUGS (22)
  1. HUMIRA 40 MG/0.8 ML PEN [Suspect]
     Indication: RHEUMATOID ARTHRITIS
     Dates: start: 2008, end: 201112
  2. CIMZIA [Concomitant]
     Indication: RHEUMATOID ARTHRITIS
     Dates: start: 2012
  3. SULFASALAZINE [Concomitant]
     Indication: RHEUMATOID ARTHRITIS
  4. CYTOMEL [Concomitant]
     Indication: HYPOTHYROIDISM
  5. TRAZODONE [Concomitant]
     Indication: INSOMNIA
  6. LIPITOR [Concomitant]
     Indication: BLOOD CHOLESTEROL INCREASED
  7. POTASSIUM [Concomitant]
     Indication: ELECTROLYTE SUBSTITUTION THERAPY
  8. AMLODIPINE [Concomitant]
     Indication: HYPERTENSION
  9. CLONAZEPAM [Concomitant]
     Indication: ANXIETY
  10. DIOVAN [Concomitant]
     Indication: HYPERTENSION
  11. PREDNISONE [Concomitant]
     Indication: RHEUMATOID ARTHRITIS
  12. PROTONIX [Concomitant]
     Indication: GASTRIC DISORDER
  13. LAMICTAL [Concomitant]
     Indication: CONVULSION
  14. EFFEXOR XR [Concomitant]
     Indication: DEPRESSION
  15. FLUOXETINE [Concomitant]
     Indication: DEPRESSION
  16. ADVAIR [Concomitant]
     Indication: ASTHMA
  17. VOLTAREN GEL [Concomitant]
     Indication: RHEUMATOID ARTHRITIS
  18. ALBUTEROL [Concomitant]
     Indication: ASTHMA
  19. LORAZEPAM [Concomitant]
     Indication: ANXIETY
  20. MELOXICAM [Concomitant]
     Indication: RHEUMATOID ARTHRITIS
  21. PROMETHAZINE [Concomitant]
     Indication: NAUSEA
  22. FENTYNYL PATCH [Concomitant]
     Indication: PAIN

REACTIONS (1)
  - Drug ineffective [Recovered/Resolved]
